FAERS Safety Report 25224240 (Version 1)
Quarter: 2025Q2

REPORT INFORMATION
  Report Type: Spontaneous
  Country: US (occurrence: None)
  Receive Date: 20250421
  Receipt Date: 20250421
  Transmission Date: 20250716
  Serious: Yes (Other)
  Sender: FDA-CTU
  Company Number: None

PATIENT
  Age: 67 Year
  Sex: Female
  Weight: 85.5 kg

DRUGS (16)
  1. PROLIA [Suspect]
     Active Substance: DENOSUMAB
     Indication: Osteoporosis
  2. LEVOTHYROXINE [Concomitant]
     Active Substance: LEVOTHYROXINE
  3. hydrocodone 7.5/350 [Concomitant]
  4. ALBUTEROL SULFATE [Concomitant]
     Active Substance: ALBUTEROL SULFATE
  5. DILTIAZEM [Concomitant]
     Active Substance: DILTIAZEM
  6. OMEPRAZOLE [Concomitant]
     Active Substance: OMEPRAZOLE
  7. CETIRIZINE [Concomitant]
     Active Substance: CETIRIZINE HYDROCHLORIDE
  8. GABAPENTIN [Concomitant]
     Active Substance: GABAPENTIN
  9. PREDNISONE [Concomitant]
     Active Substance: PREDNISONE
  10. CELECOXIB [Concomitant]
     Active Substance: CELECOXIB
  11. METHOCARBAMOL [Concomitant]
     Active Substance: METHOCARBAMOL
  12. DICLOFENAC SODIUM [Concomitant]
     Active Substance: DICLOFENAC SODIUM
  13. aspirin 325 m [Concomitant]
  14. VITAMIN D [Concomitant]
     Active Substance: VITAMIN D NOS
  15. SIMETHICONE (DIMETHICONE) [Concomitant]
     Active Substance: DIMETHICONE
  16. Beano lactase-product [Concomitant]

REACTIONS (8)
  - Diarrhoea [None]
  - Abdominal pain [None]
  - Urinary tract infection [None]
  - Arthralgia [None]
  - Coccydynia [None]
  - Myalgia [None]
  - Pain in extremity [None]
  - Bone pain [None]

NARRATIVE: CASE EVENT DATE: 20250402
